FAERS Safety Report 18256306 (Version 1)
Quarter: 2020Q3

REPORT INFORMATION
  Report Type: Other
  Country: US (occurrence: US)
  Receive Date: 20200911
  Receipt Date: 20200911
  Transmission Date: 20201103
  Serious: Yes (Other)
  Sender: FDA-Public Use
  Company Number: US-ROCHE-2669701

PATIENT
  Age: 42 Year
  Sex: Female
  Weight: 81.72 kg

DRUGS (19)
  1. LEVOFLOXACIN. [Concomitant]
     Active Substance: LEVOFLOXACIN
     Route: 048
     Dates: start: 20181220
  2. VENLAFAXINE HCL [Concomitant]
     Active Substance: VENLAFAXINE HYDROCHLORIDE
     Dosage: TAKE 2 CAPSULES DAILY
     Route: 048
     Dates: start: 20181006
  3. LAMOTRIGINE. [Concomitant]
     Active Substance: LAMOTRIGINE
     Dosage: TAKE 1 TABLET BY MOUTH IN THE MORNING AND 2 TABS AT BEDTIME
     Route: 048
     Dates: start: 20190417
  4. NEURONTIN [Concomitant]
     Active Substance: GABAPENTIN
     Route: 048
     Dates: start: 20181203
  5. MYRBETRIQ [Concomitant]
     Active Substance: MIRABEGRON
     Route: 048
     Dates: start: 20190403
  6. VENLAFAXINE HCL [Concomitant]
     Active Substance: VENLAFAXINE HYDROCHLORIDE
     Dosage: TAKE 1 CAPSULE BY MOUTH EVERYDAY WITH FOOD
     Route: 048
     Dates: start: 20160927
  7. COLACE [Concomitant]
     Active Substance: DOCUSATE SODIUM
     Route: 048
     Dates: start: 20190403
  8. PANTOPRAZOLE SODIUM. [Concomitant]
     Active Substance: PANTOPRAZOLE SODIUM
     Route: 048
     Dates: start: 20181017
  9. VENLAFAXINE HCL [Concomitant]
     Active Substance: VENLAFAXINE HYDROCHLORIDE
     Dosage: TAKE 1 CAPSULE AT BEDTIME
     Route: 048
     Dates: start: 20190417
  10. VALIUM [Suspect]
     Active Substance: DIAZEPAM
     Indication: PRODUCT USED FOR UNKNOWN INDICATION
     Dosage: TAKE 1 TABLET OTHER TAKE ONE TABLET 30 MINUTES BEFORE PROCEDURE AND MAY REPEAT?ONCE
     Route: 048
     Dates: start: 20180823
  11. LAMOTRIGINE. [Concomitant]
     Active Substance: LAMOTRIGINE
     Route: 048
     Dates: start: 20181101
  12. LAMOTRIGINE. [Concomitant]
     Active Substance: LAMOTRIGINE
     Route: 048
     Dates: start: 20181006, end: 20181006
  13. DALFAMPRIDINE. [Concomitant]
     Active Substance: DALFAMPRIDINE
     Route: 048
     Dates: start: 20190717
  14. OCREVUS [Suspect]
     Active Substance: OCRELIZUMAB
     Indication: MULTIPLE SCLEROSIS
     Dosage: SUBSEQUENT INFUSION: 600 MG IN 500 ML 0.9% NORMAL SALINE
     Route: 042
     Dates: start: 201803
  15. TRAZODONE HYDROCHLORIDE. [Concomitant]
     Active Substance: TRAZODONE HYDROCHLORIDE
     Dosage: TAKE 1 TABLET AT BEDTIME
     Route: 048
     Dates: start: 20190417
  16. TRAZODONE HYDROCHLORIDE. [Concomitant]
     Active Substance: TRAZODONE HYDROCHLORIDE
     Dosage: TAKE 2 TABLETS AT BEDTIME
     Route: 048
     Dates: start: 20190717
  17. BACLOFEN. [Concomitant]
     Active Substance: BACLOFEN
     Route: 048
     Dates: start: 20170404
  18. DALFAMPRIDINE. [Concomitant]
     Active Substance: DALFAMPRIDINE
     Route: 048
     Dates: start: 20191107
  19. TRAZODONE HYDROCHLORIDE. [Concomitant]
     Active Substance: TRAZODONE HYDROCHLORIDE
     Dosage: TAKE 2 TABLETS AT BEDTIME
     Route: 048
     Dates: start: 20190116

REACTIONS (8)
  - Muscular weakness [Unknown]
  - Fall [Unknown]
  - Eye disorder [Unknown]
  - Bronchitis [Unknown]
  - Tremor [Not Recovered/Not Resolved]
  - Depression [Unknown]
  - Urinary tract infection [Unknown]
  - Hemiparesis [Unknown]

NARRATIVE: CASE EVENT DATE: 201808
